FAERS Safety Report 22396658 (Version 1)
Quarter: 2023Q2

REPORT INFORMATION
  Report Type: Spontaneous
  Country: US (occurrence: US)
  Receive Date: 20230601
  Receipt Date: 20230601
  Transmission Date: 20230722
  Serious: No
  Sender: FDA-Public Use
  Company Number: US-APIL-2315359US

PATIENT
  Sex: Female
  Weight: 49.895 kg

DRUGS (4)
  1. RESTASIS [Suspect]
     Active Substance: CYCLOSPORINE
     Indication: Dry eye
     Dosage: 2 GTT, BID
     Route: 047
  2. RALOXIFENE [Concomitant]
     Active Substance: RALOXIFENE
     Indication: Osteoporosis
     Dosage: 60 MG
  3. RALOXIFENE [Concomitant]
     Active Substance: RALOXIFENE
     Indication: Breast cancer
  4. SKYRIZI [Suspect]
     Active Substance: RISANKIZUMAB-RZAA
     Indication: Crohn^s disease
     Dosage: 360 MG, ONCE IN 8 WEEKS
     Route: 058
     Dates: start: 20230222

REACTIONS (9)
  - Nausea [Not Recovered/Not Resolved]
  - Feeling hot [Recovered/Resolved]
  - Fatigue [Not Recovered/Not Resolved]
  - Abdominal pain [Recovered/Resolved]
  - Dizziness [Recovered/Resolved]
  - Feeling abnormal [Recovered/Resolved]
  - Underweight [Not Recovered/Not Resolved]
  - Weight decreased [Not Recovered/Not Resolved]
  - COVID-19 [Recovered/Resolved]

NARRATIVE: CASE EVENT DATE: 20160101
